FAERS Safety Report 10145944 (Version 1)
Quarter: 2014Q2

REPORT INFORMATION
  Report Type: Spontaneous
  Country: US (occurrence: US)
  Receive Date: 20140501
  Receipt Date: 20140501
  Transmission Date: 20141212
  Serious: No
  Sender: FDA-Public Use
  Company Number: US-ABBVIE-13P-163-1155855-00

PATIENT
  Age: 37 Year
  Sex: Female
  Weight: 62.2 kg

DRUGS (1)
  1. CREON [Suspect]
     Indication: CYSTIC FIBROSIS
     Dosage: 5 CAPSULES WITH MEALS AND 3 CAPSULES WITH SNACKS
     Dates: start: 201210

REACTIONS (4)
  - Malaise [Not Recovered/Not Resolved]
  - Drug dose omission [Recovered/Resolved]
  - Abdominal pain upper [Not Recovered/Not Resolved]
  - Steatorrhoea [Not Recovered/Not Resolved]
